FAERS Safety Report 5079537-0 (Version None)
Quarter: 2006Q3

REPORT INFORMATION
  Report Type: 
  Country: None (occurrence: None)
  Receive Date: 20060814
  Receipt Date: 20060421
  Transmission Date: 20061208
  Serious: No
  Sender: FDA-Public Use
  Company Number: US-BRISTOL-MYERS SQUIBB COMPANY-13353362

PATIENT
  Sex: Male

DRUGS (3)
  1. GLUCOVANCE [Suspect]
     Dates: end: 20060414
  2. BYETTA [Concomitant]
  3. LEVEMIR [Concomitant]

REACTIONS (1)
  - DIARRHOEA [None]
